FAERS Safety Report 18592290 (Version 7)
Quarter: 2021Q3

REPORT INFORMATION
  Report Type: Report from Study
  Country: US (occurrence: US)
  Receive Date: 20201209
  Receipt Date: 20210910
  Transmission Date: 20211014
  Serious: No
  Sender: FDA-Public Use
  Company Number: NVSC2020US326817

PATIENT
  Age: 41 Year
  Sex: Female

DRUGS (2)
  1. KESIMPTA [Suspect]
     Active Substance: OFATUMUMAB
     Indication: MULTIPLE SCLEROSIS
     Dosage: 20 MG (BENEATH THE SKIN)
     Route: 058
     Dates: start: 20201128
  2. DECADRON [Concomitant]
     Active Substance: DEXAMETHASONE
     Indication: PRODUCT USED FOR UNKNOWN INDICATION
     Dosage: UNK
     Route: 065

REACTIONS (13)
  - Hypoaesthesia [Not Recovered/Not Resolved]
  - Sinusitis [Unknown]
  - Insomnia [Recovering/Resolving]
  - Hypoaesthesia oral [Not Recovered/Not Resolved]
  - Migraine [Recovering/Resolving]
  - Nasopharyngitis [Unknown]
  - Affect lability [Unknown]
  - Blood thyroid stimulating hormone decreased [Recovered/Resolved]
  - Ill-defined disorder [Recovering/Resolving]
  - Dizziness [Unknown]
  - Nausea [Unknown]
  - Confusional state [Recovering/Resolving]
  - Fatigue [Recovering/Resolving]

NARRATIVE: CASE EVENT DATE: 20201128
